FAERS Safety Report 17098276 (Version 1)
Quarter: 2019Q4

REPORT INFORMATION
  Report Type: Spontaneous
  Country: US (occurrence: US)
  Receive Date: 20191105
  Receipt Date: 20191105
  Transmission Date: 20200122
  Serious: No
  Sender: FDA-Public Use
  Company Number: None

PATIENT
  Age: 84 Year
  Sex: Male

DRUGS (1)
  1. CLINDAMYCIN. [Suspect]
     Active Substance: CLINDAMYCIN
     Indication: PROPHYLAXIS

REACTIONS (6)
  - Constipation [None]
  - Calculus urinary [None]
  - Dyspepsia [None]
  - Peptic ulcer [None]
  - Intestinal ischaemia [None]
  - Abdominal pain [None]

NARRATIVE: CASE EVENT DATE: 20190516
